FAERS Safety Report 15624561 (Version 1)
Quarter: 2018Q4

REPORT INFORMATION
  Report Type: Spontaneous
  Country: US (occurrence: US)
  Receive Date: 20181116
  Receipt Date: 20181116
  Transmission Date: 20190205
  Serious: No
  Sender: FDA-Public Use
  Company Number: US-BRISTOL-MYERS SQUIBB COMPANY-BMS-2018-107589

PATIENT
  Sex: Female

DRUGS (1)
  1. ORENCIA [Suspect]
     Active Substance: ABATACEPT
     Indication: OVERLAP SYNDROME
     Dosage: 125 MG, QWK
     Route: 058
     Dates: start: 20181001

REACTIONS (2)
  - Product use in unapproved indication [Unknown]
  - Lacrimation increased [Unknown]
